FAERS Safety Report 7298457-4 (Version None)
Quarter: 2011Q1

REPORT INFORMATION
  Report Type: 
  Country: None (occurrence: None)
  Receive Date: 20110204
  Receipt Date: 20110121
  Transmission Date: 20110831
  Serious: Yes (Other)
  Sender: FDA-Public Use
  Company Number: 026305

PATIENT
  Sex: Female

DRUGS (2)
  1. LEVOCETIRIZINE (LEVOCETIRIZINE) [Suspect]
     Dosage: (5 MG)
  2. CETIRIZINE (CETIRIZINE) [Suspect]
     Dosage: (5-20 MG/DAY)

REACTIONS (2)
  - DRUG EXPOSURE DURING PREGNANCY [None]
  - ABORTION SPONTANEOUS [None]
